FAERS Safety Report 15667450 (Version 1)
Quarter: 2018Q4

REPORT INFORMATION
  Report Type: Spontaneous
  Country: US (occurrence: US)
  Receive Date: 20181128
  Receipt Date: 20181128
  Transmission Date: 20190205
  Serious: Yes (Death, Hospitalization)
  Sender: FDA-Public Use
  Company Number: US-BAYER-2018-216345

PATIENT
  Age: 61 Year
  Sex: Female

DRUGS (1)
  1. SORAFENIB (RAF KINASE INHIBITOR) [Suspect]
     Active Substance: SORAFENIB
     Indication: RENAL CELL CARCINOMA

REACTIONS (9)
  - Myocarditis [Fatal]
  - Myalgia [None]
  - Ascites [Fatal]
  - Dyspnoea exertional [Fatal]
  - Oedema peripheral [Fatal]
  - Myositis [None]
  - Cardiogenic shock [Fatal]
  - Tachycardia [Fatal]
  - Venous pressure jugular increased [Fatal]
